FAERS Safety Report 9195734 (Version 1)
Quarter: 2013Q1

REPORT INFORMATION
  Report Type: Spontaneous
  Country: US (occurrence: None)
  Receive Date: 20130325
  Receipt Date: 20130325
  Transmission Date: 20140127
  Serious: Yes (Other)
  Sender: FDA-Public Use
  Company Number: None

PATIENT
  Age: 75 Year
  Sex: Female
  Weight: 52.16 kg

DRUGS (1)
  1. LEVOFLOXACIN [Suspect]
     Indication: RESPIRATORY TRACT INFECTION
     Route: 048

REACTIONS (1)
  - Balance disorder [None]
